FAERS Safety Report 4751693-0 (Version None)
Quarter: 2005Q3

REPORT INFORMATION
  Report Type: 
  Country: None (occurrence: None)
  Receive Date: 20050822
  Receipt Date: 20050809
  Transmission Date: 20060218
  Serious: Yes (Hospitalization)
  Sender: FDA-Public Use
  Company Number: GRP05000191

PATIENT
  Age: 64 Year
  Sex: Female
  Weight: 72 kg

DRUGS (1)
  1. ACTONEL [Suspect]
     Indication: OSTEOPOROSIS
     Dosage: 35 MG, 1 ONLY, ORAL
     Route: 048
     Dates: start: 20050411, end: 20050411

REACTIONS (5)
  - DIARRHOEA [None]
  - FEELING COLD [None]
  - NAUSEA [None]
  - PAIN [None]
  - TACHYCARDIA [None]
